FAERS Safety Report 8395107-0 (Version None)
Quarter: 2012Q2

REPORT INFORMATION
  Report Type: 
  Country: None (occurrence: None)
  Receive Date: 20120530
  Receipt Date: 20120525
  Transmission Date: 20120825
  Serious: Yes (Hospitalization, Other)
  Sender: FDA-Public Use
  Company Number: IT-PFIZER INC-2010000454

PATIENT
  Age: 29 Year
  Sex: Female

DRUGS (7)
  1. HALOPERIDOL [Suspect]
     Indication: PSYCHOTIC DISORDER
     Dosage: UNK
  2. RISPERIDONE [Suspect]
     Indication: PSYCHOTIC DISORDER
     Dosage: UNK
     Route: 065
  3. VENLAFAXINE HCL [Suspect]
     Indication: DEPRESSION
     Dosage: 150 MG, DAILY
     Route: 065
  4. PERPHENAZINE [Suspect]
     Indication: PSYCHOTIC DISORDER
     Dosage: UNK
     Route: 065
  5. PAROXETINE [Suspect]
     Indication: BIPOLAR II DISORDER
  6. VALPROATE SODIUM [Suspect]
     Indication: DEPRESSION
     Dosage: UNK
     Route: 065
  7. PAROXETINE [Suspect]
     Indication: MAJOR DEPRESSION
     Dosage: 20 MG, DAILY
     Route: 065

REACTIONS (2)
  - DEPRESSION [None]
  - HYPOMANIA [None]
